FAERS Safety Report 5260769-3 (Version None)
Quarter: 2007Q1

REPORT INFORMATION
  Report Type: 
  Country: None (occurrence: None)
  Receive Date: 20070309
  Receipt Date: 20070228
  Transmission Date: 20070707
  Serious: Yes (Other)
  Sender: FDA-Public Use
  Company Number: JP-MERCK-0703USA00580

PATIENT
  Age: 70 Year
  Sex: Female

DRUGS (1)
  1. PEPCID [Suspect]
     Route: 048
     Dates: start: 20070101

REACTIONS (1)
  - RED BLOOD CELL COUNT DECREASED [None]
